FAERS Safety Report 9647031 (Version 1)
Quarter: 2013Q4

REPORT INFORMATION
  Report Type: Spontaneous
  Country: US (occurrence: US)
  Receive Date: 20131027
  Receipt Date: 20131027
  Transmission Date: 20140711
  Serious: No
  Sender: FDA-Public Use
  Company Number: US-PURDUE-USA-2013-0104289

PATIENT
  Sex: Male

DRUGS (8)
  1. OXYCONTIN (NDA 22-272) [Suspect]
     Indication: SCIATICA
  2. OXYCONTIN (NDA 22-272) [Suspect]
     Indication: BACK PAIN
  3. OXYCODONE HYDROCHLORIDE (SIMILAR TO NDA 22-272) [Suspect]
     Indication: SCIATICA
  4. OXYCODONE HYDROCHLORIDE (SIMILAR TO NDA 22-272) [Suspect]
     Indication: BACK PAIN
  5. PENNSAID [Suspect]
     Indication: SCIATICA
  6. PENNSAID [Suspect]
     Indication: BACK PAIN
  7. ALL THE OTHER PAIN PATCHES [Suspect]
     Indication: SCIATICA
  8. ALL THE OTHER PAIN PATCHES [Suspect]
     Indication: BACK PAIN

REACTIONS (1)
  - Drug ineffective [Unknown]
